FAERS Safety Report 25957238 (Version 2)
Quarter: 2025Q4

REPORT INFORMATION
  Report Type: Spontaneous
  Country: JP (occurrence: JP)
  Receive Date: 20251024
  Receipt Date: 20251119
  Transmission Date: 20260118
  Serious: Yes (Hospitalization, Other)
  Sender: PFIZER
  Company Number: JP-GENMAB-2025-03174

PATIENT
  Age: 54 Year
  Sex: Female

DRUGS (1)
  1. TIVDAK [Suspect]
     Active Substance: TISOTUMAB VEDOTIN-TFTV
     Indication: Adenocarcinoma of the cervix
     Dosage: 2 MILLIGRAM/KILOGRAM
     Route: 042
     Dates: start: 20250814, end: 2025

REACTIONS (5)
  - Sepsis [Recovering/Resolving]
  - Anaemia [Recovering/Resolving]
  - Metastases to central nervous system [Unknown]
  - Nausea [Unknown]
  - Diarrhoea [Unknown]

NARRATIVE: CASE EVENT DATE: 20250101
